FAERS Safety Report 11129369 (Version 1)
Quarter: 2015Q2

REPORT INFORMATION
  Report Type: Not Available
  Country: GB (occurrence: GB)
  Receive Date: 20150521
  Receipt Date: 20150521
  Transmission Date: 20150821
  Serious: Yes (Other)
  Sender: FDA-Public Use
  Company Number: GB-MUNDIPHARMA DS AND PHARMACOVIGILANCE-GBR-2015-0027806

PATIENT
  Age: 60 Year
  Sex: Female
  Weight: 85.27 kg

DRUGS (3)
  1. MST CONTINUS TABLETS [Concomitant]
     Active Substance: MORPHINE SULFATE
     Indication: PRODUCT USED FOR UNKNOWN INDICATION
     Route: 065
  2. MORPHINE SULPHATE [Concomitant]
     Active Substance: MORPHINE SULFATE
     Indication: PRODUCT USED FOR UNKNOWN INDICATION
     Dosage: UNK
     Route: 065
  3. BUTRANS [Suspect]
     Active Substance: BUPRENORPHINE
     Indication: PAIN
     Dosage: UNK
     Route: 062

REACTIONS (5)
  - Blister rupture [Recovered/Resolved with Sequelae]
  - Application site haemorrhage [Unknown]
  - Application site vesicles [Recovered/Resolved with Sequelae]
  - Application site erythema [Recovered/Resolved with Sequelae]
  - Application site burn [Recovered/Resolved with Sequelae]

NARRATIVE: CASE EVENT DATE: 201410
